APPROVED DRUG PRODUCT: PROLENSA
Active Ingredient: BROMFENAC SODIUM
Strength: EQ 0.07% ACID
Dosage Form/Route: SOLUTION/DROPS;OPHTHALMIC
Application: N203168 | Product #001 | TE Code: AB
Applicant: BAUSCH AND LOMB INC
Approved: Apr 5, 2013 | RLD: Yes | RS: Yes | Type: RX

PATENTS:
Patent 9517220 | Expires: Nov 11, 2033
Patent 10085958 | Expires: Nov 19, 2032